FAERS Safety Report 10111433 (Version 2)
Quarter: 2014Q2

REPORT INFORMATION
  Report Type: Other
  Country: US (occurrence: US)
  Receive Date: 20140425
  Receipt Date: 20140506
  Transmission Date: 20141212
  Serious: Yes (Death, Other)
  Sender: FDA-Public Use
  Company Number: US-SHIRE-US201401368

PATIENT
  Age: 13 Year
  Sex: Male

DRUGS (1)
  1. ELAPRASE [Suspect]
     Indication: MUCOPOLYSACCHARIDOSIS II
     Dosage: 30 MG (FIVE VIALS), 1X/WEEK
     Route: 041
     Dates: start: 20090710, end: 20140412

REACTIONS (3)
  - Death [Fatal]
  - Tracheal disorder [Unknown]
  - Dyspnoea [Unknown]
